FAERS Safety Report 7927141-6 (Version None)
Quarter: 2011Q4

REPORT INFORMATION
  Report Type: 
  Country: None (occurrence: None)
  Receive Date: 20111116
  Receipt Date: 20111102
  Transmission Date: 20120403
  Serious: Yes (Other)
  Sender: FDA-Public Use
  Company Number: 1000025368

PATIENT
  Age: 39 Year
  Sex: Female

DRUGS (2)
  1. ESCITALOPRAM OXALATE [Suspect]
     Dosage: 10 MG (10 MG, IN 1 D), ORAL
     Route: 048
     Dates: start: 20110101
  2. LEVETIRACETAM [Suspect]
     Dosage: 1000 MG (500 MG, 2 IN 1 D), ORAL
     Route: 048
     Dates: start: 20110603

REACTIONS (1)
  - AMENORRHOEA [None]
